FAERS Safety Report 8141717-5 (Version None)
Quarter: 2012Q1

REPORT INFORMATION
  Report Type: 
  Country: None (occurrence: None)
  Receive Date: 20120216
  Receipt Date: 20120210
  Transmission Date: 20120608
  Serious: Yes (Hospitalization)
  Sender: FDA-Public Use
  Company Number: PHEH2012US001096

PATIENT
  Age: 56 Year
  Sex: Female

DRUGS (8)
  1. CYMBALTA [Concomitant]
  2. CARDIZEM [Suspect]
     Indication: HYPERTENSION
     Dosage: 320 MG, QD
  3. TAZTIA XT [Suspect]
     Dosage: 360 MG, QD
  4. TEKTURNA [Suspect]
     Indication: HYPERTENSION
     Dosage: 300 MG, QD
  5. CARVEDILOL [Suspect]
     Dosage: 6.25 DF, BID
  6. ALPRAZOLAM [Concomitant]
  7. LISINOPRIL [Suspect]
     Dosage: 20 MG, QD
  8. LISINOPRIL [Suspect]
     Dosage: 20 MG, BID

REACTIONS (2)
  - CHRONIC OBSTRUCTIVE PULMONARY DISEASE [None]
  - BLOOD PRESSURE INCREASED [None]
